FAERS Safety Report 8270697-7 (Version None)
Quarter: 2012Q2

REPORT INFORMATION
  Report Type: 
  Country: None (occurrence: None)
  Receive Date: 20120410
  Receipt Date: 20120329
  Transmission Date: 20120825
  Serious: Yes (Hospitalization)
  Sender: FDA-Public Use
  Company Number: US-ELI_LILLY_AND_COMPANY-US201204000180

PATIENT
  Age: 64 Year
  Sex: Female

DRUGS (6)
  1. EFFIENT [Suspect]
     Dosage: 10 MG, QD
     Dates: start: 20120301
  2. ASPIRIN [Concomitant]
  3. HEPARIN [Concomitant]
  4. EFFIENT [Suspect]
     Indication: STENT PLACEMENT
     Dosage: 60 MG, LOADING DOSE
     Dates: start: 20120301, end: 20120301
  5. NITROUS OXIDE [Concomitant]
  6. ACE INHIBITORS [Concomitant]

REACTIONS (1)
  - INTRACARDIAC THROMBUS [None]
